FAERS Safety Report 9705973 (Version 1)
Quarter: 2013Q4

REPORT INFORMATION
  Report Type: Spontaneous
  Country: JP (occurrence: JP)
  Receive Date: 20131122
  Receipt Date: 20131122
  Transmission Date: 20140711
  Serious: Yes (Other)
  Sender: FDA-Public Use
  Company Number: JP-GLAXOSMITHKLINE-B0946998A

PATIENT
  Sex: Female

DRUGS (1)
  1. IMIGRAN STATDOSE [Suspect]
     Indication: PRODUCT USED FOR UNKNOWN INDICATION
     Route: 058
     Dates: end: 201307

REACTIONS (4)
  - Epilepsy [Unknown]
  - Asthenia [Not Recovered/Not Resolved]
  - Photophobia [Not Recovered/Not Resolved]
  - Palpitations [Not Recovered/Not Resolved]
